FAERS Safety Report 15747707 (Version 2)
Quarter: 2019Q1

REPORT INFORMATION
  Report Type: Spontaneous
  Country: IE (occurrence: IE)
  Receive Date: 20181221
  Receipt Date: 20190125
  Transmission Date: 20190417
  Serious: Yes (Other)
  Sender: FDA-Public Use
  Company Number: IE-BAXTER-2018BAX029035

PATIENT
  Age: 7 Day
  Sex: Male
  Weight: 1.2 kg

DRUGS (22)
  1. SODIUM CHLORIDE. [Suspect]
     Active Substance: SODIUM CHLORIDE
     Indication: PARENTERAL NUTRITION
     Dosage: VIA PICC LINE; WITH SMOFLIPID AND VITLIPID N INFANT
     Route: 042
     Dates: start: 20181116, end: 20181119
  2. MAGNESIUM SULPHATE [Suspect]
     Active Substance: MAGNESIUM SULFATE
     Indication: PARENTERAL NUTRITION
     Dosage: VIA PICC LINE; WITH SMOFLIPID AND VITLIPID N INFANT
     Route: 042
     Dates: start: 20181116, end: 20181119
  3. CALCIUM GLUCONATE. [Suspect]
     Active Substance: CALCIUM GLUCONATE
     Dosage: VIA PICC LINE; WITHOUT SMOFLIPID AND VITLIPID N INFANT
     Route: 042
     Dates: start: 20181120, end: 20181120
  4. VAMINOLACT [Suspect]
     Active Substance: ALANINE\ARGININE\ASPARTIC ACID\CYSTEINE HYDROCHLORIDE\GLUTAMIC ACID\GLYCINE\HISTIDINE\ISOLEUCINE\LEUCINE\LYSINE ACETATE\METHIONINE\PHENYLALANINE\PROLINE\SERINE\TAURINE\THREONINE\TRYPTOPHAN\TYROSINE\VALINE
     Indication: PARENTERAL NUTRITION
     Dosage: VIA PICC LINE; WITH SMOFLIPID AND VITLIPID N INFANT
     Route: 042
     Dates: start: 20181116, end: 20181119
  5. VAMINOLACT [Suspect]
     Active Substance: ALANINE\ARGININE\ASPARTIC ACID\CYSTEINE HYDROCHLORIDE\GLUTAMIC ACID\GLYCINE\HISTIDINE\ISOLEUCINE\LEUCINE\LYSINE ACETATE\METHIONINE\PHENYLALANINE\PROLINE\SERINE\TAURINE\THREONINE\TRYPTOPHAN\TYROSINE\VALINE
     Dosage: VIA PICC LINE; WITHOUT SMOFLIPID AND VITLIPID N INFANT
     Route: 042
     Dates: start: 20181120, end: 20181120
  6. CALCIUM GLUCONATE. [Suspect]
     Active Substance: CALCIUM GLUCONATE
     Indication: PARENTERAL NUTRITION
     Dosage: VIA PICC LINE; WITH SMOFLIPID AND VITLIPID N INFANT
     Route: 042
     Dates: start: 20181116, end: 20181119
  7. GLUCOSE [Suspect]
     Active Substance: DEXTROSE
     Dosage: VIA PICC LINE; WITHOUT SMOFLIPID AND VITLIPID N INFANT
     Route: 042
     Dates: start: 20181120, end: 20181120
  8. SODIUM GLYCEROPHOSPHATE [Suspect]
     Active Substance: SODIUM GLYCEROPHOSPHATE
     Indication: PARENTERAL NUTRITION
     Dosage: VIA PICC LINE; WITH SMOFLIPID AND VITLIPID N INFANT
     Route: 042
     Dates: start: 20181116, end: 20181119
  9. SODIUM GLYCEROPHOSPHATE [Suspect]
     Active Substance: SODIUM GLYCEROPHOSPHATE
     Dosage: VIA PICC LINE; WITHOUT SMOFLIPID AND VITLIPID N INFANT
     Route: 042
     Dates: start: 20181120, end: 20181120
  10. PEDITRACE [Suspect]
     Active Substance: CUPRIC CHLORIDE\MANGANESE CHLORIDE\POTASSIUM IODIDE\SODIUM FLUORIDE\SODIUM SELENITE\ZINC CHLORIDE
     Dosage: VIA PICC LINE; WITHOUT SMOFLIPID AND VITLIPID N INFANT
     Route: 042
     Dates: start: 20181120, end: 20181120
  11. MAGNESIUM SULPHATE [Suspect]
     Active Substance: MAGNESIUM SULFATE
     Dosage: VIA PICC LINE; WITHOUT SMOFLIPID AND VITLIPID N INFANT
     Route: 042
     Dates: start: 20181120, end: 20181120
  12. WATER FOR INJECTION [Suspect]
     Active Substance: WATER
     Indication: PARENTERAL NUTRITION
     Dosage: VIA PICC LINE; WITH SMOFLIPID AND VITLIPID N INFANT
     Route: 042
     Dates: start: 20181116, end: 20181119
  13. SODIUM CHLORIDE. [Suspect]
     Active Substance: SODIUM CHLORIDE
     Dosage: VIA PICC LINE; WITHOUT SMOFLIPID AND VITLIPID N INFANT
     Route: 042
     Dates: start: 20181120, end: 20181120
  14. POTASSIUM CHLORIDE. [Suspect]
     Active Substance: POTASSIUM CHLORIDE
     Dosage: VIA PICC LINE; WITHOUT SMOFLIPID AND VITLIPID N INFANT
     Route: 042
     Dates: start: 20181120, end: 20181120
  15. WATER FOR INJECTION [Suspect]
     Active Substance: WATER
     Dosage: VIA PICC LINE; WITHOUT SMOFLIPID AND VITLIPID N INFANT
     Route: 042
     Dates: start: 20181120, end: 20181120
  16. GLUCOSE [Suspect]
     Active Substance: DEXTROSE
     Indication: PARENTERAL NUTRITION
     Dosage: VIA PICC LINE; WITH SMOFLIPID AND VITLIPID N INFANT
     Route: 042
     Dates: start: 20181116, end: 20181119
  17. POTASSIUM CHLORIDE. [Suspect]
     Active Substance: POTASSIUM CHLORIDE
     Indication: PARENTERAL NUTRITION
     Dosage: VIA PICC LINE; WITH SMOFLIPID AND VITLIPID N INFANT
     Route: 042
     Dates: start: 20181116, end: 20181119
  18. PEDITRACE [Suspect]
     Active Substance: CUPRIC CHLORIDE\MANGANESE CHLORIDE\POTASSIUM IODIDE\SODIUM FLUORIDE\SODIUM SELENITE\ZINC CHLORIDE
     Indication: PARENTERAL NUTRITION
     Dosage: VIA PICC LINE; WITH SMOFLIPID AND VITLIPID N INFANT
     Route: 042
     Dates: start: 20181116, end: 20181119
  19. SOLIVITO N [Suspect]
     Active Substance: ASCORBIC ACID\BIOTIN\CYANOCOBALAMIN\FOLIC ACID\NIACINAMIDE\PANTOTHENIC ACID\PYRIDOXINE\RIBOFLAVIN\THIAMINE
     Indication: PARENTERAL NUTRITION
     Dosage: SOLIVITO N (IN WFI 10ML) A; VIA PICC LINE; WITH SMOFLIPID AND VITLIPID N INFANT
     Route: 042
     Dates: start: 20181116, end: 20181119
  20. SMOFLIPID [Suspect]
     Active Substance: FISH OIL\MEDIUM-CHAIN TRIGLYCERIDES\OLIVE OIL\SOYBEAN OIL
     Indication: PARENTERAL NUTRITION
     Dosage: VIA PICC LINE
     Route: 042
     Dates: start: 20181116, end: 20181119
  21. VITLIPID N INFANT [ERGOCALCIFEROL\PHYTONADIONE\RETINOL\TOCOPHEROL] [Suspect]
     Active Substance: ERGOCALCIFEROL\PHYTONADIONE\RETINOL\TOCOPHEROL
     Indication: PARENTERAL NUTRITION
     Dosage: VIA PICC LINE
     Route: 042
     Dates: start: 20181116, end: 20181119
  22. SOLIVITO N [Suspect]
     Active Substance: ASCORBIC ACID\BIOTIN\CYANOCOBALAMIN\FOLIC ACID\NIACINAMIDE\PANTOTHENIC ACID\PYRIDOXINE\RIBOFLAVIN\THIAMINE
     Dosage: SOLIVITO N (IN WFI 10ML) A; VIA PICC LINE; WITHOUT SMOFLIPID AND VITLIPID N INFANT
     Route: 042
     Dates: start: 20181120, end: 20181120

REACTIONS (3)
  - Staphylococcal infection [Recovering/Resolving]
  - Device related infection [Recovering/Resolving]
  - Recalled product administered [Unknown]

NARRATIVE: CASE EVENT DATE: 20181116
